FAERS Safety Report 25668571 (Version 2)
Quarter: 2025Q4

REPORT INFORMATION
  Report Type: Spontaneous
  Country: EU (occurrence: EU)
  Receive Date: 20250812
  Receipt Date: 20251002
  Transmission Date: 20260117
  Serious: Yes (Hospitalization, Other)
  Sender: BAXTER
  Company Number: None

PATIENT
  Age: 28 Year
  Sex: Male
  Weight: 83 kg

DRUGS (8)
  1. PROPOFOL [Suspect]
     Active Substance: PROPOFOL
     Indication: Sedative therapy
     Dosage: BETWEEN 2.59MG/KG/H AND 4.41MG/KG/H
     Route: 042
     Dates: start: 20250711, end: 20250714
  2. PROPOFOL [Suspect]
     Active Substance: PROPOFOL
     Dosage: 20 MG BOLUS AND 250 MG BOLUS
     Route: 042
     Dates: start: 20250724, end: 20250724
  3. PROPOFOL [Suspect]
     Active Substance: PROPOFOL
     Dosage: 1.03MG/KG/H
     Route: 042
     Dates: start: 20250727, end: 20250727
  4. NOREPINEPHRINE BITARTRATE [Concomitant]
     Active Substance: NOREPINEPHRINE BITARTRATE
     Dosage: 1 DOSAGE FORM, QD
     Route: 042
     Dates: start: 20250711, end: 20250714
  5. DEXMEDETOMIDINE HYDROCHLORIDE [Concomitant]
     Active Substance: DEXMEDETOMIDINE HYDROCHLORIDE
     Dosage: 1 DOSAGE FORM, QD
     Route: 042
     Dates: start: 20250711, end: 20250714
  6. REMIFENTANIL [Concomitant]
     Active Substance: REMIFENTANIL
     Dosage: 1 DOSAGE FORM, QD
     Route: 042
  7. AMIKACIN [Concomitant]
     Active Substance: AMIKACIN
     Dosage: 1 DOSAGE FORM, QD
     Route: 042
     Dates: start: 20250711, end: 20250714
  8. CEFTAZIDIME [Concomitant]
     Active Substance: CEFTAZIDIME
     Dosage: 1 DOSAGE FORM, QD
     Route: 042
     Dates: start: 20250711, end: 20250714

REACTIONS (3)
  - Hepatic cytolysis [Recovering/Resolving]
  - Cholestasis [Recovering/Resolving]
  - Propofol infusion syndrome [Recovering/Resolving]

NARRATIVE: CASE EVENT DATE: 20250714
